FAERS Safety Report 7472593-1 (Version None)
Quarter: 2011Q2

REPORT INFORMATION
  Report Type: 
  Country: None (occurrence: None)
  Receive Date: 20110502
  Receipt Date: 20110418
  Transmission Date: 20111010
  Serious: Yes (Other)
  Sender: FDA-Public Use
  Company Number: 031353

PATIENT
  Sex: Female

DRUGS (4)
  1. LACOSAMIDE [Suspect]
     Dates: start: 20100101
  2. VALPROIC ACID [Concomitant]
  3. KEPPRA [Suspect]
  4. METHOTREXATE [Concomitant]

REACTIONS (2)
  - VISUAL FIELD DEFECT [None]
  - OPTIC ATROPHY [None]
